FAERS Safety Report 20242868 (Version 1)
Quarter: 2021Q4

REPORT INFORMATION
  Report Type: Spontaneous
  Country: US (occurrence: US)
  Receive Date: 20211228
  Receipt Date: 20211228
  Transmission Date: 20220303
  Serious: No
  Sender: FDA-Public Use
  Company Number: US-COOPERSURGICAL, INC.-US-2021CPS001538

PATIENT
  Age: 25 Year
  Sex: Female
  Weight: 58.503 kg

DRUGS (1)
  1. PARAGARD T 380A [Suspect]
     Active Substance: COPPER
     Indication: Contraception
     Dosage: UNK
     Route: 015
     Dates: start: 20191217, end: 20210517

REACTIONS (9)
  - Vaginal odour [Recovered/Resolved with Sequelae]
  - Chills [Recovered/Resolved]
  - Chlamydia test positive [Recovered/Resolved]
  - Pelvic pain [Unknown]
  - Dyspareunia [Unknown]
  - Vaginal discharge [Recovered/Resolved]
  - Device dislocation [Recovered/Resolved]
  - Pain [Recovered/Resolved]
  - Pyrexia [Recovered/Resolved]

NARRATIVE: CASE EVENT DATE: 20200612
